FAERS Safety Report 14588287 (Version 1)
Quarter: 2018Q1

REPORT INFORMATION
  Report Type: Spontaneous
  Country: US (occurrence: US)
  Receive Date: 20180301
  Receipt Date: 20180301
  Transmission Date: 20180509
  Serious: No
  Sender: FDA-Public Use
  Company Number: US-MYLANLABS-2018M1014095

PATIENT
  Age: 65 Year
  Sex: Female

DRUGS (6)
  1. AVELUMAB [Concomitant]
     Active Substance: AVELUMAB
     Indication: PRODUCT USED FOR UNKNOWN INDICATION
     Dosage: UNK
     Dates: start: 20171220, end: 20171222
  2. EPINEPHRINE. [Suspect]
     Active Substance: EPINEPHRINE
     Indication: INFUSION RELATED REACTION
     Dosage: UNK
  3. SODIUM CHLORIDE. [Suspect]
     Active Substance: SODIUM CHLORIDE
     Indication: INFUSION RELATED REACTION
     Dosage: UNK
  4. DIPHENHYDRAMINE HYDROCHLORIDE. [Suspect]
     Active Substance: DIPHENHYDRAMINE HYDROCHLORIDE
     Indication: INFUSION RELATED REACTION
     Dosage: UNK
  5. METHYLPREDNISOLONE. [Suspect]
     Active Substance: METHYLPREDNISOLONE
     Indication: INFUSION RELATED REACTION
     Dosage: UNK
  6. FAMOTIDINE. [Suspect]
     Active Substance: FAMOTIDINE
     Indication: INFUSION RELATED REACTION
     Dosage: UNK

REACTIONS (1)
  - Back pain [Recovered/Resolved]
